FAERS Safety Report 15077914 (Version 2)
Quarter: 2018Q3

REPORT INFORMATION
  Report Type: Spontaneous
  Country: JP (occurrence: JP)
  Receive Date: 20180627
  Receipt Date: 20180702
  Transmission Date: 20181010
  Serious: Yes (Hospitalization, Other)
  Sender: FDA-Public Use
  Company Number: JP-PFIZER INC-2018259276

PATIENT
  Age: 10 Year
  Sex: Female

DRUGS (6)
  1. MEROPENEM. [Suspect]
     Active Substance: MEROPENEM
     Indication: MENINGITIS BACTERIAL
     Dosage: UNK
  2. DEXAMETHASONE. [Suspect]
     Active Substance: DEXAMETHASONE
     Indication: MENINGITIS BACTERIAL
     Dosage: UNK
  3. DEXAMETHASONE. [Suspect]
     Active Substance: DEXAMETHASONE
     Indication: EVIDENCE BASED TREATMENT
  4. CEFOTAXIME [Concomitant]
     Active Substance: CEFOTAXIME SODIUM
     Indication: EVIDENCE BASED TREATMENT
  5. CEFOTAXIME [Concomitant]
     Active Substance: CEFOTAXIME SODIUM
     Indication: MENINGITIS BACTERIAL
     Dosage: UNK
  6. MEROPENEM. [Suspect]
     Active Substance: MEROPENEM
     Indication: EVIDENCE BASED TREATMENT

REACTIONS (3)
  - Hyponatraemia [Recovering/Resolving]
  - Drug ineffective [Recovering/Resolving]
  - Listeria encephalitis [Recovering/Resolving]
